FAERS Safety Report 22260350 (Version 1)
Quarter: 2023Q2

REPORT INFORMATION
  Report Type: Spontaneous
  Country: US (occurrence: None)
  Receive Date: 20230425
  Receipt Date: 20230425
  Transmission Date: 20230722
  Serious: Yes (Other)
  Sender: FDA-Public Use
  Company Number: None

PATIENT
  Age: 80 Year
  Sex: Male

DRUGS (21)
  1. POMALYST [Suspect]
     Active Substance: POMALIDOMIDE
     Indication: Plasma cell myeloma
     Dosage: OTHER FREQUENCY : QD X21/28D;?
     Route: 048
     Dates: end: 20230424
  2. POMALYST [Concomitant]
     Active Substance: POMALIDOMIDE
  3. ACYCLOVIR (ZOVIRAX) [Concomitant]
  4. KLONOPIN [Concomitant]
     Active Substance: CLONAZEPAM
  5. DECADRON [Concomitant]
     Active Substance: DEXAMETHASONE
  6. ALVESCO [Concomitant]
     Active Substance: CICLESONIDE
  7. LASIX [Concomitant]
     Active Substance: FUROSEMIDE
  8. DECADRON [Suspect]
     Active Substance: DEXAMETHASONE
  9. ZYRTEC [Concomitant]
     Active Substance: CETIRIZINE HYDROCHLORIDE
  10. ALBUTEROL (PROAIR/PROVENTIL/VENTOLIN) [Concomitant]
  11. CRESTOR [Concomitant]
     Active Substance: ROSUVASTATIN CALCIUM
  12. SENNOSIDES-DOCUSATE SOD (STIMULANT LAXATIVES PLUS) [Concomitant]
  13. CETRIZINE (ZYRTEC) [Concomitant]
  14. PRIMIDONE (MYSOLINE) PTMD PATCH [Concomitant]
  15. LIDOCAINE (LIDOCARE/ASPERCREME/LIDO KING) [Concomitant]
  16. CARBOXYMETHYLCELLULOSE (REFRESH TEARS) OPHT DROP [Concomitant]
  17. WHITE PETROLATUM-MINERAL OIL (REFRESH P.M.) [Concomitant]
  18. COENZYME Q10 (CO Q-10) [Concomitant]
  19. CHOLECALCIFEROL [Concomitant]
     Active Substance: CHOLECALCIFEROL
  20. VITAMIN D3 [Concomitant]
     Active Substance: CHOLECALCIFEROL
  21. ASPIRIN [Concomitant]
     Active Substance: ASPIRIN

REACTIONS (3)
  - Pruritus [None]
  - Rash [None]
  - Therapy interrupted [None]

NARRATIVE: CASE EVENT DATE: 20230422
